FAERS Safety Report 9032657 (Version 1)
Quarter: 2013Q1

REPORT INFORMATION
  Report Type: Spontaneous
  Country: US (occurrence: None)
  Receive Date: 20130110
  Receipt Date: 20130110
  Transmission Date: 20140127
  Serious: Yes (Other)
  Sender: FDA-Public Use
  Company Number: TPA2012A08177

PATIENT
  Age: 66 Year
  Sex: Female

DRUGS (7)
  1. ACTOS (PIOGLITAZONE HYDROCHLORIDE) [Suspect]
     Indication: TYPE 2 DIABETES MELLITUS
     Dates: start: 2004, end: 201107
  2. METFORMIN (METFORMIN) [Concomitant]
  3. GLUCOPHAGE (METFORMIN HYDROCHLORIDE) [Concomitant]
  4. PRECOSE (ACARBOSE) [Concomitant]
  5. GLUCOTROL (GLIPIZIDE) [Concomitant]
  6. AMARYL (GLIMEPIRIDE) [Concomitant]
  7. TOLINASE (TOLAZAMIDE) [Concomitant]

REACTIONS (2)
  - Bladder cancer [None]
  - Urinary tract infection [None]
